FAERS Safety Report 6244684-4 (Version None)
Quarter: 2009Q2

REPORT INFORMATION
  Report Type: 
  Country: None (occurrence: None)
  Receive Date: 20090625
  Receipt Date: 20090622
  Transmission Date: 20091009
  Serious: Yes (Hospitalization)
  Sender: FDA-Public Use
  Company Number: BR-WYE-H09850709

PATIENT
  Sex: Male

DRUGS (17)
  1. SIROLIMUS [Suspect]
     Indication: PROPHYLAXIS AGAINST TRANSPLANT REJECTION
     Route: 048
     Dates: start: 20030610, end: 20030612
  2. SIROLIMUS [Suspect]
     Route: 048
     Dates: start: 20030613, end: 20030726
  3. SIROLIMUS [Suspect]
     Route: 048
     Dates: start: 20030727, end: 20030814
  4. METHYLPREDNISOLONE [Concomitant]
     Indication: PROPHYLAXIS AGAINST TRANSPLANT REJECTION
     Route: 042
     Dates: start: 20030610, end: 20030613
  5. DACLIZUMAB [Concomitant]
     Indication: PROPHYLAXIS AGAINST TRANSPLANT REJECTION
     Dosage: 150 MG ONCE
     Route: 042
     Dates: start: 20030610, end: 20030610
  6. DACLIZUMAB [Concomitant]
     Route: 042
     Dates: start: 20030613, end: 20030806
  7. PREDNISONE [Concomitant]
     Indication: PROPHYLAXIS AGAINST TRANSPLANT REJECTION
     Dosage: VARYING DOSES
     Route: 048
     Dates: start: 20030613
  8. RANITIDINE [Concomitant]
     Dosage: UNKNOWN
     Route: 065
     Dates: start: 20030614
  9. CLONIDINE [Concomitant]
     Dosage: UNKNOWN
     Route: 065
     Dates: start: 20030619
  10. PROPRANOLOL HYDROCHLORIDE [Concomitant]
     Dosage: UNKNOWN
     Route: 065
     Dates: start: 20030613
  11. HYDRALAZINE HCL [Concomitant]
     Dosage: UNKNOWN
     Route: 065
     Dates: start: 20030613
  12. SULFAMETHOXAZOLE AND TRIMETHOPRIM [Concomitant]
     Dosage: UNKNOWN
     Route: 065
     Dates: start: 20030614
  13. MYCOPHENOLATE MOFETIL [Suspect]
     Indication: PROPHYLAXIS AGAINST TRANSPLANT REJECTION
     Route: 048
     Dates: start: 20030610, end: 20030612
  14. MYCOPHENOLATE MOFETIL [Suspect]
     Route: 048
     Dates: start: 20030613, end: 20030701
  15. MYCOPHENOLATE MOFETIL [Suspect]
     Route: 048
     Dates: start: 20030702, end: 20030730
  16. MYCOPHENOLATE MOFETIL [Suspect]
     Route: 048
     Dates: start: 20030731, end: 20030806
  17. GANCICLOVIR [Suspect]
     Route: 042
     Dates: start: 20030723, end: 20030805

REACTIONS (1)
  - BONE MARROW FAILURE [None]
